FAERS Safety Report 4511236-3 (Version None)
Quarter: 2004Q4

REPORT INFORMATION
  Report Type: 
  Country: None (occurrence: None)
  Receive Date: 20041129
  Receipt Date: 20041117
  Transmission Date: 20050328
  Serious: Yes (Hospitalization)
  Sender: FDA-Public Use
  Company Number: US-JNJFOC-20041105583

PATIENT
  Sex: Male

DRUGS (24)
  1. BLINDED; INFLIXIMAB, RECOMBINANT [Suspect]
     Route: 042
  2. BLINDED; INFLIXIMAB, RECOMBINANT [Suspect]
     Route: 042
  3. BLINDED; INFLIXIMAB, RECOMBINANT [Suspect]
     Route: 042
  4. BLINDED; INFLIXIMAB, RECOMBINANT [Suspect]
     Route: 042
  5. BLINDED; INFLIXIMAB, RECOMBINANT [Suspect]
     Route: 042
  6. BLINDED; INFLIXIMAB, RECOMBINANT [Suspect]
     Route: 042
  7. PLACEBO [Suspect]
     Route: 042
  8. PLACEBO [Suspect]
     Route: 042
  9. PLACEBO [Suspect]
     Route: 042
  10. PLACEBO [Suspect]
     Route: 042
  11. PLACEBO [Suspect]
     Route: 042
  12. PLACEBO [Suspect]
     Route: 042
  13. NORVASC [Concomitant]
     Route: 049
  14. TOPROL-XL [Concomitant]
     Route: 049
  15. COZAAR [Concomitant]
     Route: 049
  16. FLONASE [Concomitant]
     Route: 049
  17. ZYRTEC [Concomitant]
     Route: 049
  18. VIAGRA [Concomitant]
  19. ZOCOR [Concomitant]
  20. COMBIVENT [Concomitant]
     Route: 055
  21. COMBIVENT [Concomitant]
     Route: 055
  22. ADVAIR [Concomitant]
     Route: 055
  23. ADVAIR [Concomitant]
     Route: 055
  24. ALBUTEROL [Concomitant]
     Route: 055

REACTIONS (2)
  - ATRIAL FIBRILLATION [None]
  - DRUG INTERACTION [None]
